FAERS Safety Report 8250482-2 (Version None)
Quarter: 2012Q2

REPORT INFORMATION
  Report Type: 
  Country: None (occurrence: None)
  Receive Date: 20120402
  Receipt Date: 20120402
  Transmission Date: 20120825
  Serious: Yes (Life-Threatening, Hospitalization, Other)
  Sender: FDA-Public Use
  Company Number: None

PATIENT
  Age: 47 Year
  Sex: Male
  Weight: 61.234 kg

DRUGS (1)
  1. CEPHALEXIN [Suspect]
     Indication: BRONCHITIS
     Route: 048

REACTIONS (7)
  - DIARRHOEA [None]
  - DEHYDRATION [None]
  - ABDOMINAL PAIN [None]
  - WEIGHT DECREASED [None]
  - BACK PAIN [None]
  - MUSCLE SPASMS [None]
  - VOMITING [None]
